FAERS Safety Report 14183420 (Version 2)
Quarter: 2017Q4

REPORT INFORMATION
  Report Type: Spontaneous
  Country: US (occurrence: US)
  Receive Date: 20171113
  Receipt Date: 20171211
  Transmission Date: 20180321
  Serious: Yes (Other)
  Sender: FDA-Public Use
  Company Number: US-FDC LIMITED-2017RIS00220

PATIENT
  Age: 73 Year
  Sex: Female
  Weight: 58.96 kg

DRUGS (9)
  1. AMLODIPINE BESYLATE. [Concomitant]
     Active Substance: AMLODIPINE BESYLATE
     Dosage: 5 MG, 1X/DAY
     Route: 048
  2. KETOROLAC [Suspect]
     Active Substance: KETOROLAC\KETOROLAC TROMETHAMINE
     Indication: CATARACT OPERATION
     Dosage: UNK
     Dates: start: 201708, end: 20170829
  3. OMEGA 3 FATTY ACIDS [Concomitant]
     Active Substance: OMEGA-3 FATTY ACIDS
     Dosage: 870 MG, 1X/DAY
  4. SUCRALFATE. [Concomitant]
     Active Substance: SUCRALFATE
     Dosage: 1 G, UP TO 4X/DAY AS NEEDED
     Route: 048
  5. OFLOXACIN. [Suspect]
     Active Substance: OFLOXACIN
     Indication: CATARACT OPERATION
     Dosage: UNK UNK, 1-2 DROPS IN EACH EYE 4X/DAY
     Route: 047
     Dates: start: 20170828, end: 20170829
  6. CLOPIDOGREL BISULFATE. [Concomitant]
     Active Substance: CLOPIDOGREL BISULFATE
     Dosage: 75 MG, 1X/DAY
  7. ATORVASTATIN CALCIUM. [Concomitant]
     Active Substance: ATORVASTATIN CALCIUM
     Dosage: 40 MG, 1X/DAY
     Route: 048
  8. VITAMIN D [Concomitant]
     Active Substance: CHOLECALCIFEROL
     Dosage: 400 IU, 1X/DAY
  9. NIZATIDINE. [Concomitant]
     Active Substance: NIZATIDINE
     Dosage: 300 MG, 2X/DAY
     Route: 048

REACTIONS (10)
  - Cranial nerve disorder [Unknown]
  - Insomnia [Recovering/Resolving]
  - Abdominal pain upper [Unknown]
  - Hypertension [Not Recovered/Not Resolved]
  - Hepatic steatosis [Unknown]
  - Headache [Recovered/Resolved]
  - Malaise [Unknown]
  - Carpal tunnel syndrome [Unknown]
  - Cystitis [Unknown]
  - Haematuria [Unknown]

NARRATIVE: CASE EVENT DATE: 2017
